FAERS Safety Report 13276365 (Version 1)
Quarter: 2017Q1

REPORT INFORMATION
  Report Type: Spontaneous
  Country: DE (occurrence: DE)
  Receive Date: 20170228
  Receipt Date: 20170228
  Transmission Date: 20170428
  Serious: Yes (Hospitalization)
  Sender: FDA-Public Use
  Company Number: PHHY2017DE028994

PATIENT
  Sex: Female

DRUGS (1)
  1. EXJADE [Suspect]
     Active Substance: DEFERASIROX
     Indication: MYELODYSPLASTIC SYNDROME
     Dosage: 2 G, QD
     Route: 065
     Dates: start: 2016, end: 2016

REACTIONS (4)
  - Duodenal ulcer haemorrhage [Unknown]
  - Acute abdomen [Unknown]
  - Duodenal ulcer [Unknown]
  - Duodenal ulcer perforation [Unknown]

NARRATIVE: CASE EVENT DATE: 201612
